FAERS Safety Report 17285469 (Version 2)
Quarter: 2020Q1

REPORT INFORMATION
  Report Type: Report from Study
  Country: FR (occurrence: FR)
  Receive Date: 20200117
  Receipt Date: 20200129
  Transmission Date: 20200409
  Serious: Yes (Hospitalization)
  Sender: FDA-Public Use
  Company Number: FR-EXELIXIS-XL18420026653

PATIENT
  Age: 64 Year
  Sex: Male
  Weight: 93 kg

DRUGS (7)
  1. XL184 [Suspect]
     Active Substance: CABOZANTINIB
     Indication: TRANSITIONAL CELL CARCINOMA
     Dosage: 40 MG, QD
     Route: 048
     Dates: start: 20180915
  2. PARACETAMOL [Concomitant]
     Active Substance: ACETAMINOPHEN
  3. INNOHEP [Concomitant]
     Active Substance: TINZAPARIN SODIUM
  4. SPASFON [Concomitant]
  5. OXYCONTIN [Concomitant]
     Active Substance: OXYCODONE HYDROCHLORIDE
  6. ATEZOLIZUMAB. [Suspect]
     Active Substance: ATEZOLIZUMAB
     Indication: TRANSITIONAL CELL CARCINOMA
     Dosage: 1200 MG, Q3WEEKS
     Route: 042
     Dates: start: 20180915
  7. VINFLUNINE [Concomitant]
     Active Substance: VINFLUNINE

REACTIONS (1)
  - Large intestinal obstruction [Unknown]

NARRATIVE: CASE EVENT DATE: 20191226
